FAERS Safety Report 6190234-0 (Version None)
Quarter: 2009Q2

REPORT INFORMATION
  Report Type: 
  Country: None (occurrence: None)
  Receive Date: 20090513
  Receipt Date: 20090513
  Transmission Date: 20091009
  Serious: No
  Sender: FDA-Public Use
  Company Number: None

PATIENT
  Sex: Female
  Weight: 65.318 kg

DRUGS (3)
  1. PROVENTIL-HFA [Suspect]
     Indication: ASTHMA
     Dosage: 6.7 GRAMS 2 PUFFS 4 TIMES A PO
     Route: 048
     Dates: start: 20090419, end: 20090512
  2. PROVENTIL-HFA [Suspect]
     Indication: ASTHMA EXERCISE INDUCED
     Dosage: 6.7 GRAMS 2 PUFFS 4 TIMES A PO
     Route: 048
     Dates: start: 20090419, end: 20090512
  3. PROVENTIL-HFA [Suspect]
     Indication: BRONCHOSPASM
     Dosage: 6.7 GRAMS 2 PUFFS 4 TIMES A PO
     Route: 048
     Dates: start: 20090419, end: 20090512

REACTIONS (6)
  - ABDOMINAL DISCOMFORT [None]
  - ASTHMA [None]
  - HEADACHE [None]
  - NAUSEA [None]
  - NO THERAPEUTIC RESPONSE [None]
  - PRODUCT SUBSTITUTION ISSUE [None]
